FAERS Safety Report 24341873 (Version 3)
Quarter: 2025Q1

REPORT INFORMATION
  Report Type: Report from Study
  Country: JP (occurrence: JP)
  Receive Date: 20240920
  Receipt Date: 20250310
  Transmission Date: 20250409
  Serious: Yes (Death)
  Sender: RECORDATI
  Company Number: JP-RECORDATI RARE DISEASE INC.-2024003691

PATIENT
  Age: 0 Year
  Sex: Male
  Weight: 1.559 kg

DRUGS (10)
  1. CARBAGLU [Suspect]
     Active Substance: CARGLUMIC ACID
     Indication: N-acetylglutamate synthase deficiency
     Dosage: 169 MILLIGRAM, TID
     Dates: start: 20240119, end: 20240130
  2. CARBAGLU [Suspect]
     Active Substance: CARGLUMIC ACID
     Dosage: 210 MILLIGRAM, TID
     Dates: start: 20240131, end: 20240603
  3. CARBAGLU [Suspect]
     Active Substance: CARGLUMIC ACID
     Dosage: 126.5 MILLIGRAM, TID
     Route: 048
     Dates: start: 20240604, end: 20240724
  4. CARBAGLU [Suspect]
     Active Substance: CARGLUMIC ACID
     Dosage: 126.5 MILLIGRAM, TID
     Dates: start: 20240604, end: 20240724
  5. CARBAGLU [Suspect]
     Active Substance: CARGLUMIC ACID
     Dosage: 290 MILLIGRAM, TID
     Route: 048
     Dates: start: 20240725, end: 20240815
  6. LEVOCARNITINE [Concomitant]
     Active Substance: LEVOCARNITINE
     Indication: Product used for unknown indication
     Route: 048
     Dates: start: 20240119, end: 20240815
  7. BUPHENYL [Concomitant]
     Active Substance: SODIUM PHENYLBUTYRATE
     Indication: Product used for unknown indication
     Route: 048
     Dates: start: 20240119, end: 20240409
  8. SODIUM BENZOATE [Concomitant]
     Active Substance: SODIUM BENZOATE
     Indication: Product used for unknown indication
     Route: 048
     Dates: start: 20240119, end: 20240220
  9. CITRULLINE [Concomitant]
     Active Substance: CITRULLINE
     Indication: Product used for unknown indication
     Route: 048
     Dates: start: 20240119, end: 20240507
  10. ARGININE [Concomitant]
     Active Substance: ARGININE
     Indication: Product used for unknown indication
     Route: 048
     Dates: start: 20240508, end: 20240815

REACTIONS (4)
  - Cardio-respiratory arrest [Fatal]
  - Nasopharyngitis [Fatal]
  - Pyrexia [Fatal]
  - Disease progression [Fatal]

NARRATIVE: CASE EVENT DATE: 20240101
